FAERS Safety Report 11460027 (Version 1)
Quarter: 2015Q3

REPORT INFORMATION
  Report Type: Spontaneous
  Country: US (occurrence: US)
  Receive Date: 20150904
  Receipt Date: 20150904
  Transmission Date: 20151125
  Serious: No
  Sender: FDA-Public Use
  Company Number: US-BAYER-2015-415137

PATIENT
  Age: 23 Year
  Sex: Female

DRUGS (1)
  1. SKYLA [Suspect]
     Active Substance: LEVONORGESTREL
     Indication: CONTRACEPTION
     Dosage: 14 MCG/24HR, CONT
     Route: 015
     Dates: start: 20150826, end: 20150826

REACTIONS (4)
  - Procedural pain [None]
  - Device difficult to use [None]
  - Complication of device insertion [None]
  - Abdominal pain lower [None]

NARRATIVE: CASE EVENT DATE: 20150826
